FAERS Safety Report 23357326 (Version 1)
Quarter: 2023Q4

REPORT INFORMATION
  Report Type: Spontaneous
  Country: US (occurrence: None)
  Receive Date: 20231229
  Receipt Date: 20231229
  Transmission Date: 20240110
  Serious: Yes (Death)
  Sender: FDA-Public Use
  Company Number: None

PATIENT
  Age: 67 Year
  Sex: Male

DRUGS (1)
  1. REPATHA [Suspect]
     Active Substance: EVOLOCUMAB
     Indication: Gastrooesophageal reflux disease
     Dosage: INJECT 140  ONCE EVERY 14 DAYS ... INJ??PARTIAL UNREADABLE
     Route: 050
     Dates: start: 20221226

REACTIONS (1)
  - Death [None]

NARRATIVE: CASE EVENT DATE: 20231228
